FAERS Safety Report 23099789 (Version 1)
Quarter: 2023Q4

REPORT INFORMATION
  Report Type: Spontaneous
  Country: US (occurrence: None)
  Receive Date: 20231023
  Receipt Date: 20231023
  Transmission Date: 20240110
  Serious: Yes (Other)
  Sender: FDA-Public Use
  Company Number: None

PATIENT
  Age: 39 Year
  Sex: Female
  Weight: 97.38 kg

DRUGS (3)
  1. SUBOXONE [Suspect]
     Active Substance: BUPRENORPHINE HYDROCHLORIDE\NALOXONE HYDROCHLORIDE
     Indication: Drug use disorder
     Dosage: FREQUENCY : DAILY;?
     Route: 060
     Dates: start: 20231010
  2. ARIPIPRAZOLE [Concomitant]
     Active Substance: ARIPIPRAZOLE
     Dates: start: 20231010
  3. BUPROPION [Concomitant]
     Active Substance: BUPROPION
     Dates: start: 20231010

REACTIONS (1)
  - Oedema [None]

NARRATIVE: CASE EVENT DATE: 20231023
